FAERS Safety Report 10227990 (Version 1)
Quarter: 2014Q1

REPORT INFORMATION
  Report Type: Spontaneous
  Country: US (occurrence: None)
  Receive Date: 20140306
  Receipt Date: 20140306
  Transmission Date: 20141002
  Serious: Yes (Other)
  Sender: FDA-Public Use
  Company Number: 163-21880-13071276

PATIENT
  Age: 56 Year
  Sex: Female
  Weight: 57.15 kg

DRUGS (4)
  1. REVLIMID [Suspect]
     Indication: CHRONIC LYMPHOCYTIC LEUKAEMIA
     Dosage: 2.5 MG, 21 IN 28 D, PO
     Route: 048
     Dates: start: 20130604
  2. ASPIRIN (ACETYLSALICYLIC ACID) (CHEWABLE TABLET) [Concomitant]
  3. ALLOPURINOL (UNKNOWN) [Concomitant]
  4. HERBAL LIQUID (HERBAL PREPARATION) (LIQUID) [Concomitant]

REACTIONS (3)
  - Tumour flare [None]
  - Cough [None]
  - Oedema [None]
